FAERS Safety Report 9881726 (Version 2)
Quarter: 2014Q1

REPORT INFORMATION
  Report Type: Spontaneous
  Country: US (occurrence: US)
  Receive Date: 20140207
  Receipt Date: 20140207
  Transmission Date: 20141002
  Serious: No
  Sender: FDA-Public Use
  Company Number: US-GILEAD-2011-0040455

PATIENT
  Sex: Female
  Weight: 63.49 kg

DRUGS (2)
  1. TRUVADA [Suspect]
     Indication: HIV INFECTION
  2. ISENTRESS [Concomitant]
     Indication: HIV INFECTION

REACTIONS (4)
  - Protein total decreased [Unknown]
  - Local swelling [Unknown]
  - Constipation [Unknown]
  - Abdominal distension [Unknown]
